FAERS Safety Report 23017913 (Version 6)
Quarter: 2025Q1

REPORT INFORMATION
  Report Type: Spontaneous
  Country: CA (occurrence: CA)
  Receive Date: 20231003
  Receipt Date: 20250304
  Transmission Date: 20250408
  Serious: Yes (Other)
  Sender: CELLTRION
  Company Number: CA-CELLTRION INC.-2023CA018895

PATIENT

DRUGS (40)
  1. YUFLYMA [Suspect]
     Active Substance: ADALIMUMAB-AATY
     Indication: Colitis ulcerative
     Dosage: STARTING DOSE: WEEK 0: 160MG SC
     Route: 058
     Dates: start: 20230705
  2. YUFLYMA [Suspect]
     Active Substance: ADALIMUMAB-AATY
     Dosage: WEEK 2: 80MG SC
     Route: 058
  3. YUFLYMA [Suspect]
     Active Substance: ADALIMUMAB-AATY
     Dosage: MAINTENANCE DOSE: WEEK 4: 40MG SC
     Route: 058
  4. YUFLYMA [Suspect]
     Active Substance: ADALIMUMAB-AATY
     Dosage: THEN CONTINUOUSLY YUFLYMA 40MG SC Q 2 WEEKS
     Route: 058
     Dates: start: 20230926
  5. YUFLYMA [Suspect]
     Active Substance: ADALIMUMAB-AATY
     Dosage: 80 MG WEEKLY
     Route: 058
  6. PLAVIX [Concomitant]
     Active Substance: CLOPIDOGREL BISULFATE
  7. AMLODIPINE [Concomitant]
     Active Substance: AMLODIPINE BESYLATE
  8. CITALOPRAM [Concomitant]
     Active Substance: CITALOPRAM
  9. GLICLAZIDE [Concomitant]
     Active Substance: GLICLAZIDE
  10. ATORVASTATIN [Concomitant]
     Active Substance: ATORVASTATIN
  11. DEXILANT [Concomitant]
     Active Substance: DEXLANSOPRAZOLE
  12. JARDIANCE [Concomitant]
     Active Substance: EMPAGLIFLOZIN
  13. METFORMIN [Concomitant]
     Active Substance: METFORMIN HYDROCHLORIDE
  14. PERINDOPRIL [Concomitant]
     Active Substance: PERINDOPRIL
  15. INDAPAMIDE [Concomitant]
     Active Substance: INDAPAMIDE
  16. OZEMPIC [Concomitant]
     Active Substance: SEMAGLUTIDE
  17. ZOPICLONE [Concomitant]
     Active Substance: ZOPICLONE
  18. NICODERM CQ [Concomitant]
     Active Substance: NICOTINE
  19. POLYETHYLENE GLYCOL 3350 [Concomitant]
     Active Substance: POLYETHYLENE GLYCOL 3350
  20. CLOBETASOL [Concomitant]
     Active Substance: CLOBETASOL
  21. CETIRIZINE [Concomitant]
     Active Substance: CETIRIZINE HYDROCHLORIDE
  22. VITAMINS [Concomitant]
     Active Substance: VITAMINS
  23. DICLOFENAC [Concomitant]
     Active Substance: DICLOFENAC
  24. TOPICORT [Concomitant]
     Active Substance: DESOXIMETASONE
  25. VITAMINS NOS [Concomitant]
     Active Substance: VITAMINS
  26. VITAMINS NOS [Concomitant]
     Active Substance: VITAMINS
  27. POLYETHYLENE GLYCOLS [Concomitant]
     Active Substance: POLYETHYLENE GLYCOLS
  28. POLYETHYLENE GLYCOLS [Concomitant]
     Active Substance: POLYETHYLENE GLYCOLS
  29. SEMAGLUTIDE [Concomitant]
     Active Substance: SEMAGLUTIDE
  30. CLOPIDOGREL BISULFATE [Concomitant]
     Active Substance: CLOPIDOGREL BISULFATE
  31. CLOPIDOGREL BISULFATE [Concomitant]
     Active Substance: CLOPIDOGREL BISULFATE
  32. AMLODIPINE [Concomitant]
     Active Substance: AMLODIPINE BESYLATE
     Route: 065
  33. GLICLAZIDE [Concomitant]
     Active Substance: GLICLAZIDE
  34. ATORVASTATIN [Concomitant]
     Active Substance: ATORVASTATIN
     Route: 048
  35. DEXILANT [Concomitant]
     Active Substance: DEXLANSOPRAZOLE
  36. JARDIANCE [Concomitant]
     Active Substance: EMPAGLIFLOZIN
  37. INDAPAMIDE [Concomitant]
     Active Substance: INDAPAMIDE
  38. ZOPICLONE [Concomitant]
     Active Substance: ZOPICLONE
  39. CLOBETASOL [Concomitant]
     Active Substance: CLOBETASOL
  40. SEMAGLUTIDE [Concomitant]
     Active Substance: SEMAGLUTIDE

REACTIONS (7)
  - Haematochezia [Recovering/Resolving]
  - Fistula [Recovering/Resolving]
  - Faeces soft [Recovering/Resolving]
  - General physical health deterioration [Recovering/Resolving]
  - Pain [Recovering/Resolving]
  - Drug ineffective [Recovering/Resolving]
  - Off label use [Recovering/Resolving]
